FAERS Safety Report 24555802 (Version 1)
Quarter: 2024Q4

REPORT INFORMATION
  Report Type: Spontaneous
  Country: US (occurrence: US)
  Receive Date: 20241028
  Receipt Date: 20241028
  Transmission Date: 20250115
  Serious: Yes (Life-Threatening, Hospitalization)
  Sender: MYLAN
  Company Number: US-MYLANLABS-2024M1095182

PATIENT
  Age: 16 Year
  Sex: Female

DRUGS (2)
  1. MILRINONE [Suspect]
     Active Substance: MILRINONE
     Indication: Cardiac failure
     Dosage: 0.3 MICROGRAM/KILOGRAM, QMINUTE
     Route: 065
  2. SODIUM NITROPRUSSIDE [Suspect]
     Active Substance: SODIUM NITROPRUSSIDE
     Indication: Cardiac failure
     Dosage: 0.7 MICROGRAM/KILOGRAM, QMINUTE
     Route: 065

REACTIONS (1)
  - Drug ineffective [Unknown]
